FAERS Safety Report 6476011 (Version 2)
Quarter: 2013Q2

REPORT INFORMATION
  Report Type: Spontaneous
  Country: NZ (occurrence: NZ)
  Receive Date: 20071128
  Receipt Date: 20130422
  Transmission Date: 20140414
  Serious: Yes (Hospitalization)
  Sender: FDA-Public Use
  Company Number: NZ-RANBAXY-2007US-11622

PATIENT
  Age: 67 Year
  Sex: Female

DRUGS (1)
  1. NITROFURANTOIN MONOHYDRATE/MACROCRYSTALS [Suspect]
     Indication: URINARY TRACT INFECTION
     Dosage: 50 MG, DAILY
     Route: 065
     Dates: start: 2002

REACTIONS (1)
  - Interstitial lung disease [Recovering/Resolving]
